FAERS Safety Report 21839999 (Version 3)
Quarter: 2023Q2

REPORT INFORMATION
  Report Type: Spontaneous
  Country: FR (occurrence: FR)
  Receive Date: 20230110
  Receipt Date: 20230512
  Transmission Date: 20230721
  Serious: Yes (Other)
  Sender: FDA-Public Use
  Company Number: None

PATIENT
  Age: 67 Year
  Sex: Male
  Weight: 92 kg

DRUGS (2)
  1. HYDROXYUREA [Suspect]
     Active Substance: HYDROXYUREA
     Indication: Polycythaemia vera
     Dosage: DAILY DOSE: 3 DOSAGE FORM
     Route: 048
     Dates: start: 20150707, end: 20221223
  2. KARDEGIC [Suspect]
     Active Substance: ASPIRIN DL-LYSINE

REACTIONS (4)
  - Hyperleukocytosis [Unknown]
  - Essential thrombocythaemia [Unknown]
  - Actinic keratosis [Not Recovered/Not Resolved]
  - Mouth ulceration [Unknown]

NARRATIVE: CASE EVENT DATE: 20210212
